FAERS Safety Report 9831937 (Version 1)
Quarter: 2014Q1

REPORT INFORMATION
  Report Type: Spontaneous
  Country: US (occurrence: US)
  Receive Date: 20140121
  Receipt Date: 20140121
  Transmission Date: 20141002
  Serious: No
  Sender: FDA-Public Use
  Company Number: US-PFIZER INC-2014015070

PATIENT
  Age: 58 Year
  Sex: Female
  Weight: 58.96 kg

DRUGS (5)
  1. ADVIL [Suspect]
     Indication: PAIN
     Dosage: 200 MG, AS NEEDED
     Route: 048
     Dates: start: 20140115
  2. ADVIL [Suspect]
     Indication: HEADACHE
  3. ADVIL [Suspect]
     Indication: ARTHRALGIA
  4. NEXIUM [Concomitant]
     Dosage: UNK
  5. HYDROXYZINE [Concomitant]
     Dosage: UNK, AS NEEDED

REACTIONS (7)
  - Wrong technique in drug usage process [Unknown]
  - Palpitations [Unknown]
  - Hypertension [Unknown]
  - Drug intolerance [Unknown]
  - Oropharyngeal pain [Unknown]
  - Nausea [Unknown]
  - Body height decreased [Unknown]
